FAERS Safety Report 8107883-2 (Version None)
Quarter: 2012Q1

REPORT INFORMATION
  Report Type: 
  Country: None (occurrence: None)
  Receive Date: 20120202
  Receipt Date: 20120124
  Transmission Date: 20120608
  Serious: Yes (Death, Hospitalization)
  Sender: FDA-Public Use
  Company Number: JP-PFIZER INC-2011287969

PATIENT
  Age: 48 Year
  Sex: Male
  Weight: 40 kg

DRUGS (16)
  1. TEMSIROLIMUS [Suspect]
     Indication: RENAL CELL CARCINOMA
     Dosage: 25 MG, CYCLIC
     Route: 042
     Dates: start: 20110822
  2. TEMSIROLIMUS [Suspect]
     Dosage: 25 MG, UNK
     Route: 042
     Dates: start: 20110830, end: 20110830
  3. LEVOTHYROXINE SODIUM [Concomitant]
     Dosage: 100 UG, 1X/DAY
     Route: 048
     Dates: end: 20110915
  4. ZYPREXA [Concomitant]
     Dosage: 2.5 MG, 1X/DAY
     Route: 048
  5. LEVOTHYROXINE SODIUM [Concomitant]
     Dosage: 50 UG, 1X/DAY
     Route: 048
     Dates: start: 20110916
  6. RABEPRAZOLE SODIUM [Concomitant]
     Dosage: 101 MG, 1X/DAY
     Route: 048
  7. GOODMIN [Concomitant]
     Dosage: 0.25 MG, 1X/DAY
     Route: 048
  8. TEMSIROLIMUS [Suspect]
     Dosage: 25 MG, UNK
     Route: 042
     Dates: start: 20110916, end: 20110916
  9. TEMSIROLIMUS [Suspect]
     Dosage: 25 MG, CYCLIC
     Route: 042
     Dates: start: 20110920, end: 20111114
  10. MUCOSTA [Concomitant]
     Dosage: UNK
  11. RESTAMIN [Concomitant]
     Indication: PROPHYLAXIS
     Dosage: 50 MG, WEEKLY
     Route: 048
     Dates: start: 20110822
  12. ETODOLAC [Concomitant]
     Dosage: UNK
     Route: 048
  13. PREDNISOLONE [Concomitant]
     Dosage: UNK
     Route: 048
  14. ACETAMINOPHEN [Concomitant]
     Indication: RENAL CELL CARCINOMA
     Dosage: 300 MG, 4X/DAY
     Route: 048
     Dates: start: 20110922
  15. TEMSIROLIMUS [Suspect]
     Dosage: 25 MG, UNK
     Route: 042
     Dates: start: 20110909, end: 20110909
  16. CALCIUM LACTATE [Concomitant]
     Dosage: UNK
     Route: 048

REACTIONS (6)
  - RENAL CELL CARCINOMA [None]
  - ANAEMIA [None]
  - PLEURAL EFFUSION [None]
  - TUMOUR HAEMORRHAGE [None]
  - DISEASE PROGRESSION [None]
  - DYSPNOEA [None]
